FAERS Safety Report 10082010 (Version 4)
Quarter: 2016Q3

REPORT INFORMATION
  Report Type: Spontaneous
  Country: US (occurrence: US)
  Receive Date: 20140416
  Receipt Date: 20160928
  Transmission Date: 20161108
  Serious: Yes (Other)
  Sender: FDA-Public Use
  Company Number: US-PFIZER INC-2014102647

PATIENT
  Age: 51 Year
  Sex: Female
  Weight: 90.7 kg

DRUGS (1)
  1. GEODON [Suspect]
     Active Substance: ZIPRASIDONE HYDROCHLORIDE\ZIPRASIDONE MESYLATE
     Indication: PSYCHOTIC DISORDER
     Dosage: 20 MG, 1X/DAY
     Route: 048

REACTIONS (12)
  - Gastric cancer [Unknown]
  - Chest injury [Unknown]
  - Malaise [Unknown]
  - Anxiety [Unknown]
  - Product quality issue [Unknown]
  - Blood potassium decreased [Unknown]
  - Visual impairment [Unknown]
  - Dysplasia [Unknown]
  - Gastritis [Unknown]
  - Palpitations [Unknown]
  - Vision blurred [Unknown]
  - Fatigue [Unknown]

NARRATIVE: CASE EVENT DATE: 201403
